FAERS Safety Report 25148805 (Version 3)
Quarter: 2025Q3

REPORT INFORMATION
  Report Type: Report from Study
  Country: US (occurrence: US)
  Receive Date: 20250402
  Receipt Date: 20250703
  Transmission Date: 20251021
  Serious: Yes (Other)
  Sender: SUNOVION
  Company Number: US-SMPA-2025SPA003767

PATIENT

DRUGS (1)
  1. ORGOVYX [Suspect]
     Active Substance: RELUGOLIX
     Indication: Prostate cancer
     Dosage: 120 MG, QD
     Route: 048
     Dates: start: 20250327

REACTIONS (7)
  - Nephrolithiasis [Unknown]
  - Pain [Unknown]
  - Gynaecomastia [Unknown]
  - Hot flush [Unknown]
  - Back pain [Unknown]
  - Insomnia [Unknown]
  - Incorrect dose administered [Unknown]
